FAERS Safety Report 7281147-1 (Version None)
Quarter: 2011Q1

REPORT INFORMATION
  Report Type: 
  Country: None (occurrence: None)
  Receive Date: 20110208
  Receipt Date: 20110131
  Transmission Date: 20110831
  Serious: Yes (Death)
  Sender: FDA-Public Use
  Company Number: CHPA2011US01987

PATIENT
  Age: 38 Year
  Sex: Male

DRUGS (15)
  1. QUETIAPINE [Suspect]
     Route: 048
  2. VALPROIC ACID [Suspect]
     Route: 048
  3. PHENYTOIN [Suspect]
     Route: 048
  4. BENZODIAZEPINES [Suspect]
     Route: 048
  5. CYCLOBENZAPRINE [Suspect]
     Route: 048
  6. ACETAMINOPHEN [Suspect]
     Route: 048
  7. ESZOPICLONE [Suspect]
     Route: 048
  8. DRUG THERAPY NOS [Suspect]
     Route: 048
  9. BETA BLOCKING AGENTS [Suspect]
     Route: 048
  10. CITALOPRAM [Suspect]
     Route: 048
  11. PAROXETINE HCL [Suspect]
     Route: 048
  12. VERAPAMIL [Suspect]
     Route: 048
  13. PROCHLORPERAZINE [Suspect]
     Route: 048
  14. ZOLPIDEM [Suspect]
     Route: 048
  15. DICHLORALPHENAZONE W/ISOMETHEPTENE/PARACETAM. [Suspect]
     Route: 048

REACTIONS (1)
  - COMPLETED SUICIDE [None]
